FAERS Safety Report 7794088-8 (Version None)
Quarter: 2011Q4

REPORT INFORMATION
  Report Type: 
  Country: None (occurrence: None)
  Receive Date: 20111004
  Receipt Date: 20110921
  Transmission Date: 20120403
  Serious: Yes (Hospitalization, Disabling, Other)
  Sender: FDA-Public Use
  Company Number: US-PAR PHARMACEUTICAL, INC-2011SCPR003249

PATIENT

DRUGS (5)
  1. TRAMADOL HCL [Concomitant]
     Indication: PAIN
     Dosage: 20 PILLS IN 30 DAYS
     Route: 065
  2. CABERGOLINE [Suspect]
     Indication: PROLACTINOMA
     Dosage: UNK, UNKNOWN
     Route: 065
     Dates: start: 20100901
  3. CABERGOLINE [Suspect]
     Dosage: 0.5 MG TWO PILLS TWO TIMES A WEEK
     Route: 065
  4. ZOFRAN [Concomitant]
     Indication: VOMITING
     Dosage: 4 MG, PRN
     Route: 065
  5. ALBUTEROL [Concomitant]
     Indication: DYSPNOEA
     Dosage: UNK, UNKNOWN
     Route: 065

REACTIONS (13)
  - HEART RATE ABNORMAL [None]
  - HYPERHIDROSIS [None]
  - FEELING OF BODY TEMPERATURE CHANGE [None]
  - INSOMNIA [None]
  - BLOOD TESTOSTERONE DECREASED [None]
  - GASTRIC DISORDER [None]
  - DEHYDRATION [None]
  - HYPOPITUITARISM [None]
  - FEELING JITTERY [None]
  - ORTHOSTATIC HYPERTENSION [None]
  - OEDEMA PERIPHERAL [None]
  - SLEEP APNOEA SYNDROME [None]
  - CARDIOVASCULAR INSUFFICIENCY [None]
